FAERS Safety Report 6074324-9 (Version None)
Quarter: 2009Q1

REPORT INFORMATION
  Report Type: 
  Country: None (occurrence: None)
  Receive Date: 20090211
  Receipt Date: 20090203
  Transmission Date: 20090719
  Serious: No
  Sender: FDA-Public Use
  Company Number: US-B.I. PHARMACEUTICALS,INC./RIDGEFIELD-2009-BP-01321BP

PATIENT
  Sex: Female

DRUGS (4)
  1. SPIRIVA [Suspect]
     Indication: EMPHYSEMA
     Dosage: 18MCG
     Route: 048
     Dates: start: 20090101
  2. PROVIGIL [Concomitant]
     Indication: NARCOLEPSY
  3. LOTREL [Concomitant]
     Indication: HYPERTENSION
  4. VICODIN [Concomitant]
     Indication: PAIN

REACTIONS (1)
  - INCORRECT ROUTE OF DRUG ADMINISTRATION [None]
